FAERS Safety Report 22526331 (Version 1)
Quarter: 2023Q2

REPORT INFORMATION
  Report Type: Spontaneous
  Country: CA (occurrence: CA)
  Receive Date: 20230606
  Receipt Date: 20230606
  Transmission Date: 20230721
  Serious: Yes (Hospitalization, Other)
  Sender: FDA-Public Use
  Company Number: CA-FreseniusKabi-FK202307608

PATIENT
  Age: 81 Year
  Sex: Female

DRUGS (11)
  1. VANCOMYCIN [Suspect]
     Active Substance: VANCOMYCIN
     Indication: Product used for unknown indication
     Route: 065
  2. TYLENOL [Suspect]
     Active Substance: ACETAMINOPHEN
     Indication: Product used for unknown indication
     Route: 065
  3. BUDESONIDE [Suspect]
     Active Substance: BUDESONIDE
     Indication: Product used for unknown indication
     Route: 065
  4. CAYSTON [Suspect]
     Active Substance: AZTREONAM
     Indication: Product used for unknown indication
  5. CICLESONIDE [Suspect]
     Active Substance: CICLESONIDE
     Indication: Product used for unknown indication
     Route: 065
  6. NUCALA [Suspect]
     Active Substance: MEPOLIZUMAB
     Indication: Product used for unknown indication
  7. INDACATEROL MALEATE [Suspect]
     Active Substance: INDACATEROL MALEATE
     Indication: Product used for unknown indication
  8. PULMOZYME [Suspect]
     Active Substance: DORNASE ALFA
     Indication: Product used for unknown indication
     Dosage: 1.0 MILLIGRAM/MILLILITER
  9. QVAR [Suspect]
     Active Substance: BECLOMETHASONE DIPROPIONATE
     Indication: Product used for unknown indication
     Dosage: 1.0 MILLIGRAM/MILLILITER
  10. ALBUTEROL SULFATE [Suspect]
     Active Substance: ALBUTEROL SULFATE
     Indication: Product used for unknown indication
  11. ALBUTEROL SULFATE [Suspect]
     Active Substance: ALBUTEROL SULFATE

REACTIONS (33)
  - Adverse drug reaction [Unknown]
  - Aggression [Unknown]
  - Anxiety [Unknown]
  - Asthma [Unknown]
  - Atelectasis [Unknown]
  - Atrial fibrillation [Unknown]
  - Bacterial disease carrier [Unknown]
  - Blood pressure increased [Unknown]
  - Bronchial secretion retention [Unknown]
  - Bronchospasm [Unknown]
  - Drug intolerance [Unknown]
  - Fall [Unknown]
  - General physical health deterioration [Unknown]
  - Hospitalisation [Unknown]
  - Illness [Unknown]
  - Impaired quality of life [Unknown]
  - Loss of personal independence in daily activities [Unknown]
  - Myalgia [Unknown]
  - Nonspecific reaction [Unknown]
  - Pain [Unknown]
  - Palpitations [Unknown]
  - Rib fracture [Unknown]
  - Scoliosis [Unknown]
  - Sleep disorder due to a general medical condition [Unknown]
  - Treatment noncompliance [Unknown]
  - Heart rate increased [Unknown]
  - Sinus operation [Unknown]
  - Dyspnoea [Unknown]
  - Wheezing [Unknown]
  - Drug hypersensitivity [Unknown]
  - Eosinophilia [Unknown]
  - Superinfection [Unknown]
  - Therapeutic product effect incomplete [Unknown]
